FAERS Safety Report 23898369 (Version 1)
Quarter: 2024Q2

REPORT INFORMATION
  Report Type: Spontaneous
  Country: CA (occurrence: CA)
  Receive Date: 20240524
  Receipt Date: 20240524
  Transmission Date: 20240715
  Serious: Yes (Other)
  Sender: FDA-Public Use
  Company Number: CA-Millicent Holdings Ltd.-MILL20240924

PATIENT
  Age: 91 Year
  Sex: Female

DRUGS (2)
  1. INTRAROSA [Suspect]
     Active Substance: PRASTERONE
     Indication: Product used for unknown indication
     Dosage: 6.5 MILLIGRAM
     Route: 067
  2. CANDESARTAN [Concomitant]
     Active Substance: CANDESARTAN
     Indication: Hypertension

REACTIONS (5)
  - Atrial fibrillation [Unknown]
  - Dizziness [Unknown]
  - Dysuria [Unknown]
  - Vulvovaginal burning sensation [Unknown]
  - Malaise [Unknown]
